FAERS Safety Report 4747325-8 (Version None)
Quarter: 2005Q3

REPORT INFORMATION
  Report Type: 
  Country: None (occurrence: None)
  Receive Date: 20050815
  Receipt Date: 20050531
  Transmission Date: 20060218
  Serious: No
  Sender: FDA-Public Use
  Company Number: USA050598129

PATIENT
  Sex: Male

DRUGS (3)
  1. CIALIS [Suspect]
     Indication: ARTHRALGIA
     Dosage: 20 MG/1 AS NEEDED
     Dates: start: 20050514, end: 20050515
  2. CIALIS [Suspect]
     Indication: CARDIOVASCULAR DISORDER
     Dosage: 20 MG/1 AS NEEDED
     Dates: start: 20050514, end: 20050515
  3. CIALIS [Suspect]
     Indication: SEXUAL DYSFUNCTION
     Dosage: 20 MG/1 AS NEEDED
     Dates: start: 20050514, end: 20050515

REACTIONS (1)
  - DRUG INEFFECTIVE [None]
